FAERS Safety Report 7915702-X (Version None)
Quarter: 2011Q4

REPORT INFORMATION
  Report Type: 
  Country: None (occurrence: None)
  Receive Date: 20111115
  Receipt Date: 20111104
  Transmission Date: 20120403
  Serious: Yes (Hospitalization)
  Sender: FDA-Public Use
  Company Number: FR-GLAXOSMITHKLINE-B0699416A

PATIENT
  Sex: Male

DRUGS (15)
  1. MABTHERA [Suspect]
     Route: 042
     Dates: start: 20101228, end: 20110105
  2. METHYLPREDNISOLONE [Suspect]
     Route: 042
     Dates: start: 20101228
  3. VALACYCLOVIR HYDROCHLORIDE [Concomitant]
     Route: 065
  4. BACTRIM [Concomitant]
     Route: 065
  5. PREDNISONE [Concomitant]
     Route: 065
  6. PIPERACILLIN AND TAZOBACTAM [Suspect]
     Dosage: 4G FOUR TIMES PER DAY
     Route: 042
     Dates: start: 20110106
  7. TUXIUM [Concomitant]
     Route: 065
  8. ZOFRAN [Suspect]
     Route: 042
     Dates: start: 20101112
  9. UROMITEXAN [Suspect]
     Route: 042
     Dates: start: 20101112, end: 20110104
  10. PHENERGAN [Suspect]
     Dosage: 2INJ CUMULATIVE DOSE
     Route: 042
     Dates: start: 20101228, end: 20110105
  11. TERBUTALINE [Concomitant]
     Route: 065
  12. CYCLOPHOSPHAMIDE [Suspect]
     Route: 042
     Dates: start: 20101112, end: 20110104
  13. ATACAND [Concomitant]
     Route: 065
  14. NEXIUM [Concomitant]
     Route: 065
  15. BISOPROLOL FUMARATE [Concomitant]
     Route: 065

REACTIONS (1)
  - AGRANULOCYTOSIS [None]
